FAERS Safety Report 6504086-X (Version None)
Quarter: 2009Q4

REPORT INFORMATION
  Report Type: 
  Country: None (occurrence: None)
  Receive Date: 20091216
  Receipt Date: 20091216
  Transmission Date: 20100525
  Serious: Yes (Hospitalization)
  Sender: FDA-Public Use
  Company Number: None

PATIENT
  Age: 57 Year
  Sex: Female
  Weight: 88.4514 kg

DRUGS (1)
  1. ZOMIG [Suspect]
     Indication: MIGRAINE
     Dosage: ONE TABLET WHEN MIGRAINE START 5 OR MORE A MONTH PO
     Route: 048
     Dates: start: 20000601, end: 20090612

REACTIONS (1)
  - MYOCARDIAL INFARCTION [None]
